FAERS Safety Report 13299362 (Version 1)
Quarter: 2017Q1

REPORT INFORMATION
  Report Type: Report from Study
  Country: US (occurrence: US)
  Receive Date: 20170306
  Receipt Date: 20170306
  Transmission Date: 20170428
  Serious: Yes (Other)
  Sender: FDA-Public Use
  Company Number: US-GILEAD-2017-0260567

PATIENT
  Age: 64 Year
  Sex: Female

DRUGS (2)
  1. AMBRISENTAN [Suspect]
     Active Substance: AMBRISENTAN
     Indication: PRODUCT USED FOR UNKNOWN INDICATION
     Dosage: 10 MG, UNK
     Route: 065
  2. ADCIRCA [Concomitant]
     Active Substance: TADALAFIL

REACTIONS (5)
  - Dehydration [Unknown]
  - Vomiting [Unknown]
  - Syncope [Unknown]
  - Migraine [Unknown]
  - Diarrhoea [Unknown]
